FAERS Safety Report 7481016-8 (Version None)
Quarter: 2011Q2

REPORT INFORMATION
  Report Type: 
  Country: None (occurrence: None)
  Receive Date: 20110512
  Receipt Date: 20110512
  Transmission Date: 20111010
  Serious: No
  Sender: FDA-Public Use
  Company Number: None

PATIENT
  Sex: Female
  Weight: 72.5755 kg

DRUGS (2)
  1. SPIRIVA [Suspect]
  2. SPIRIVA [Suspect]
     Indication: CHRONIC OBSTRUCTIVE PULMONARY DISEASE
     Dosage: 1 CAPSULE PER DAY INHALE
     Route: 055
     Dates: start: 20110121, end: 20110314

REACTIONS (4)
  - EYE PAIN [None]
  - OCULAR HYPERAEMIA [None]
  - BLINDNESS [None]
  - GLAUCOMA [None]
